FAERS Safety Report 8505089-6 (Version None)
Quarter: 2012Q3

REPORT INFORMATION
  Report Type: 
  Country: None (occurrence: None)
  Receive Date: 20120702
  Receipt Date: 20120615
  Transmission Date: 20120928
  Serious: Yes (Hospitalization)
  Sender: FDA-Public Use
  Company Number: JPI-P-022096

PATIENT
  Age: 42 Year
  Sex: Female

DRUGS (4)
  1. XYREM [Suspect]
     Indication: NARCOLEPSY
     Dosage: 5 GM (2.5 GM,2 IN 1 D),ORAL ; (UNSPECIFIED DOSE CHANGE),ORAL ; (5.5 GM / 3 GM),ORAL
     Route: 048
     Dates: start: 20110616
  2. XYREM [Suspect]
     Indication: NARCOLEPSY
     Dosage: 5 GM (2.5 GM,2 IN 1 D),ORAL ; (UNSPECIFIED DOSE CHANGE),ORAL ; (5.5 GM / 3 GM),ORAL
     Route: 048
     Dates: start: 20120302
  3. CITALOPRAM HYDROBROMIDE [Concomitant]
  4. OXCARBAZEPINE [Concomitant]

REACTIONS (10)
  - NERVOUSNESS [None]
  - HEADACHE [None]
  - DRY MOUTH [None]
  - DEPRESSION [None]
  - HOT FLUSH [None]
  - TREMOR [None]
  - BIPOLAR DISORDER [None]
  - ANGER [None]
  - PALPITATIONS [None]
  - DYSGEUSIA [None]
